FAERS Safety Report 11282189 (Version 2)
Quarter: 2015Q3

REPORT INFORMATION
  Report Type: Spontaneous
  Country: DE (occurrence: DE)
  Receive Date: 20150720
  Receipt Date: 20150727
  Transmission Date: 20151125
  Serious: Yes (Hospitalization, Disabling, Other)
  Sender: FDA-Public Use
  Company Number: DE-009507513-1507DEU007589

PATIENT
  Age: 61 Year
  Sex: Female

DRUGS (5)
  1. CITALOPRAM [Concomitant]
     Active Substance: CITALOPRAM HYDROBROMIDE
     Indication: DEPRESSION
     Dosage: 20 MG, ONCE A DAY
  2. RAMIPRIL. [Concomitant]
     Active Substance: RAMIPRIL
     Indication: HYPERTENSION
     Dosage: ONCE A DAY
  3. VELMETIA [Suspect]
     Active Substance: METFORMIN\SITAGLIPTIN
     Indication: TYPE 2 DIABETES MELLITUS
     Dosage: 50/1000MG, TWICE A DAY, TOTAL DAILY DOSE 100/2000MG
     Route: 048
     Dates: start: 2012, end: 201506
  4. L-THYROXIN [Concomitant]
     Active Substance: LEVOTHYROXINE SODIUM
     Indication: HYPOTHYROIDISM
     Dosage: ONCE A DAY
  5. OPIPRAMOL HYDROCHLORIDE [Concomitant]
     Active Substance: OPIPRAMOL HYDROCHLORIDE
     Indication: DEPRESSION
     Dosage: UNK, PRN

REACTIONS (3)
  - Adenocarcinoma pancreas [Unknown]
  - Reactive gastropathy [Unknown]
  - Pancreatitis [Unknown]

NARRATIVE: CASE EVENT DATE: 201503
